FAERS Safety Report 14826694 (Version 1)
Quarter: 2018Q2

REPORT INFORMATION
  Report Type: Spontaneous
  Country: DE (occurrence: DE)
  Receive Date: 20180430
  Receipt Date: 20180430
  Transmission Date: 20180711
  Serious: Yes (Hospitalization)
  Sender: FDA-Public Use
  Company Number: DE-WEST-WARD PHARMACEUTICALS CORP.-DE-H14001-18-03523

PATIENT
  Age: 79 Year
  Sex: Female
  Weight: 55 kg

DRUGS (9)
  1. METOPROLOL. [Concomitant]
     Active Substance: METOPROLOL
     Indication: PRODUCT USED FOR UNKNOWN INDICATION
     Dosage: 50 MG, 1-0-1-0, TABLETTEN ()
     Route: 048
  2. BEVACIZUMAB. [Suspect]
     Active Substance: BEVACIZUMAB
     Indication: PRODUCT USED FOR UNKNOWN INDICATION
     Dosage: 5 MG/M?, INJEKTIONS-/INFUSIONSL?SUNG ()
     Route: 042
  3. PANTOPRAZOL [Concomitant]
     Active Substance: PANTOPRAZOLE SODIUM
     Indication: PRODUCT USED FOR UNKNOWN INDICATION
     Dosage: 40 MG, 1-0-0-0, TABLETTEN ()
     Route: 048
  4. RIVAROXABAN [Concomitant]
     Active Substance: RIVAROXABAN
     Indication: PRODUCT USED FOR UNKNOWN INDICATION
     Dosage: 20 MG, 1-0-0-0, TABLETTEN ()
     Route: 048
  5. FLUOROURACIL. [Suspect]
     Active Substance: FLUOROURACIL
     Indication: PRODUCT USED FOR UNKNOWN INDICATION
     Dosage: 2400 MG/M?, INJEKTIONS-/INFUSIONSL?SUNG ()
     Route: 042
  6. CALCIUM FOLINATE [Suspect]
     Active Substance: LEUCOVORIN CALCIUM
     Indication: PRODUCT USED FOR UNKNOWN INDICATION
     Dosage: 200 MG/M?, INJEKTIONS-/INFUSIONSL?SUNG ()
     Route: 042
  7. METAMIZOL [Concomitant]
     Active Substance: METAMIZOLE SODIUM
     Indication: PRODUCT USED FOR UNKNOWN INDICATION
     Dosage: 500 MG, BEDARF, TABLETTEN ()
     Route: 048
  8. FUROSEMID [Concomitant]
     Active Substance: FUROSEMIDE
     Indication: PRODUCT USED FOR UNKNOWN INDICATION
     Dosage: 20 MG, 1-0-0-0, TABLETTEN ()
     Route: 048
  9. OXALIPLATIN. [Suspect]
     Active Substance: OXALIPLATIN
     Indication: PRODUCT USED FOR UNKNOWN INDICATION
     Dosage: 50 MG/M?, INJEKTIONS-/INFUSIONSL?SUNG ()
     Route: 042

REACTIONS (3)
  - General physical health deterioration [Unknown]
  - Pain [Unknown]
  - Rash [Unknown]
